FAERS Safety Report 24194157 (Version 1)
Quarter: 2024Q3

REPORT INFORMATION
  Report Type: Spontaneous
  Country: US (occurrence: None)
  Receive Date: 20240808
  Receipt Date: 20240808
  Transmission Date: 20241017
  Serious: Yes (Other)
  Sender: Public
  Company Number: None

PATIENT
  Age: 63 Year
  Sex: Male
  Weight: 66.15 kg

DRUGS (6)
  1. REPATHA [Suspect]
     Active Substance: EVOLOCUMAB
     Indication: Blood cholesterol
     Dosage: OTHER QUANTITY : 1 INJECTION(S)?OTHER FREQUENCY : ONCE EVERY 6 WEEKS?OTHER ROUTE : INJECTION INTO AB
     Route: 050
     Dates: start: 20210429
  2. DEXCOM SENSOR [Concomitant]
  3. NOVOLG INSULIN [Concomitant]
  4. TRESIBA [Concomitant]
     Active Substance: INSULIN DEGLUDEC
  5. VITAMIN C [Concomitant]
     Active Substance: ASCORBIC ACID
  6. BABY ASPIRN [Concomitant]

REACTIONS (17)
  - Blood glucose increased [None]
  - Dry mouth [None]
  - Dry eye [None]
  - Gastritis [None]
  - Diarrhoea [None]
  - Hepatic pain [None]
  - Abdominal pain upper [None]
  - Ear infection [None]
  - Sinusitis [None]
  - Nasal odour [None]
  - Asthenia [None]
  - Fatigue [None]
  - Muscle atrophy [None]
  - Tooth infection [None]
  - Dizziness [None]
  - Pancreatitis chronic [None]
  - Cholecystectomy [None]

NARRATIVE: CASE EVENT DATE: 20240801
